FAERS Safety Report 5118987-0 (Version None)
Quarter: 2006Q3

REPORT INFORMATION
  Report Type: 
  Country: None (occurrence: None)
  Receive Date: 20060927
  Receipt Date: 20060914
  Transmission Date: 20061208
  Serious: Yes (Death, Other)
  Sender: FDA-Public Use
  Company Number: 2006111456

PATIENT
  Age: 70 Year
  Sex: Male

DRUGS (5)
  1. ZYVOX [Suspect]
     Indication: PNEUMONIA STAPHYLOCOCCAL
     Dosage: INTRAVENOUS
     Route: 042
     Dates: start: 20060801
  2. MEROPENEM [Concomitant]
  3. NORADRENALINE (NOREPINEPHRINE) [Concomitant]
  4. FLUCONAZOLE [Concomitant]
  5. ALL OTHER THERAPEUTIC PRODUCTS [Concomitant]

REACTIONS (5)
  - CARDIAC FAILURE [None]
  - DISEASE PROGRESSION [None]
  - HAEMORRHAGE [None]
  - LACTIC ACIDOSIS [None]
  - SEPTIC SHOCK [None]
